FAERS Safety Report 9433844 (Version 1)
Quarter: 2013Q3

REPORT INFORMATION
  Report Type: Spontaneous
  Country: US (occurrence: US)
  Receive Date: 20130731
  Receipt Date: 20130731
  Transmission Date: 20140515
  Serious: No
  Sender: FDA-Public Use
  Company Number: US-ASTRAZENECA-2013SE49705

PATIENT
  Sex: Male
  Weight: 77.1 kg

DRUGS (6)
  1. SEROQUEL [Suspect]
     Indication: SLEEP DISORDER
     Route: 048
  2. SEROQUEL [Suspect]
     Indication: SLEEP DISORDER
     Route: 048
  3. SEROQUEL [Suspect]
     Indication: SLEEP DISORDER
     Dosage: ANOTHER QUARTER OF 150 MG
     Route: 048
  4. LAMICTAL [Concomitant]
     Indication: AFFECTIVE DISORDER
  5. AMBIEN [Concomitant]
     Indication: SLEEP DISORDER
  6. PAXIL [Concomitant]
     Indication: DEPRESSION

REACTIONS (6)
  - Sedation [Unknown]
  - Hypersomnia [Unknown]
  - Intentional drug misuse [Unknown]
  - Off label use [Unknown]
  - Drug ineffective for unapproved indication [Unknown]
  - Off label use [Unknown]
